FAERS Safety Report 5272026-X (Version None)
Quarter: 2007Q1

REPORT INFORMATION
  Report Type: 
  Country: None (occurrence: None)
  Receive Date: 20061214
  Receipt Date: 20060221
  Transmission Date: 20070707
  Serious: Yes (Other)
  Sender: FDA-Public Use
  Company Number: 2006025694

PATIENT
  Sex: Female
  Weight: 81.6475 kg

DRUGS (8)
  1. BEXTRA [Suspect]
     Indication: ARTHRITIS
     Dosage: 20 MG (20 MG,1 IN 1 D)
  2. CELEBREX [Suspect]
     Indication: ARTHRITIS
     Dosage: 400 MG (200 MG,2 IN 1 D)
     Dates: start: 20020101, end: 20021101
  3. PROTONIX [Concomitant]
  4. SYNTHROID [Concomitant]
  5. POTASSIUM (POTASSIUM) [Concomitant]
  6. DYNACIRC [Concomitant]
  7. ASPIRIN [Concomitant]
  8. AMARYL [Concomitant]

REACTIONS (6)
  - ARRHYTHMIA [None]
  - ASTHENIA [None]
  - FALL [None]
  - HIP FRACTURE [None]
  - RASH PRURITIC [None]
  - WALKING AID USER [None]
